FAERS Safety Report 9773115 (Version 1)
Quarter: 2013Q4

REPORT INFORMATION
  Report Type: Spontaneous
  Country: US (occurrence: US)
  Receive Date: 20131219
  Receipt Date: 20131219
  Transmission Date: 20140711
  Serious: Yes (Hospitalization, Other)
  Sender: FDA-Public Use
  Company Number: US-B.I. PHARMACEUTICALS,INC./RIDGEFIELD-2013-BI-42042BP

PATIENT
  Sex: Male
  Weight: 103 kg

DRUGS (1)
  1. COMBIVENT [Suspect]
     Indication: HYPERSENSITIVITY
     Dosage: STRENGTH: 18 MCG / 103 MCG;
     Route: 055
     Dates: end: 201305

REACTIONS (9)
  - Prostate cancer [Not Recovered/Not Resolved]
  - Peripheral artery aneurysm [Not Recovered/Not Resolved]
  - Thrombosis [Not Recovered/Not Resolved]
  - Cardiac fibrillation [Not Recovered/Not Resolved]
  - Peripheral artery aneurysm [Not Recovered/Not Resolved]
  - Diabetes mellitus [Not Recovered/Not Resolved]
  - Neck mass [Not Recovered/Not Resolved]
  - Hypoacusis [Not Recovered/Not Resolved]
  - Off label use [Recovered/Resolved]
